FAERS Safety Report 21961201 (Version 1)
Quarter: 2023Q1

REPORT INFORMATION
  Report Type: Other
  Country: US (occurrence: None)
  Receive Date: 20230207
  Receipt Date: 20230207
  Transmission Date: 20230417
  Serious: Yes (Other)
  Sender: FDA-Public Use
  Company Number: US-ROCHE-3276874

PATIENT
  Age: 42 Year
  Sex: Male

DRUGS (3)
  1. TOCILIZUMAB [Suspect]
     Active Substance: TOCILIZUMAB
     Indication: COVID-19
     Dosage: ONE 810-MG DOSE OF TOCILIZUMAB
     Route: 065
  2. REMDESIVIR [Concomitant]
     Active Substance: REMDESIVIR
  3. BARICITINIB [Concomitant]
     Active Substance: BARICITINIB
     Dosage: 14-DAY COURSE OF 4 MG OF BARICITINIB

REACTIONS (3)
  - Ischaemic stroke [Unknown]
  - COVID-19 [Unknown]
  - Off label use [Unknown]
